FAERS Safety Report 6131461-8 (Version None)
Quarter: 2009Q1

REPORT INFORMATION
  Report Type: 
  Country: None (occurrence: None)
  Receive Date: 20090325
  Receipt Date: 20080908
  Transmission Date: 20090719
  Serious: Yes (Life-Threatening, Hospitalization, Disabling)
  Sender: FDA-Public Use
  Company Number: US-BRISTOL-MYERS SQUIBB COMPANY-14279707

PATIENT
  Sex: Male

DRUGS (5)
  1. ERBITUX [Suspect]
     Indication: COLORECTAL CANCER METASTATIC
     Dosage: DOSE REDUCED PRIOR TO INITIATING
     Route: 042
     Dates: start: 20080717
  2. DECADRON [Concomitant]
     Route: 042
  3. ZOFRAN [Concomitant]
     Route: 048
  4. CAMPTOSAR [Concomitant]
     Route: 042
  5. BENADRYL [Concomitant]
     Route: 048

REACTIONS (1)
  - CARDIAC ARREST [None]
